FAERS Safety Report 8065480-1 (Version None)
Quarter: 2012Q1

REPORT INFORMATION
  Report Type: 
  Country: None (occurrence: None)
  Receive Date: 20120124
  Receipt Date: 20120112
  Transmission Date: 20120608
  Serious: Yes (Other)
  Sender: FDA-Public Use
  Company Number: DE-UCBSA-026031

PATIENT
  Age: 30 Year
  Sex: Female
  Weight: 122 kg

DRUGS (2)
  1. KEPPRA [Suspect]
     Route: 048
     Dates: start: 20101105, end: 20110101
  2. VIMPAT [Suspect]
     Indication: EPILEPSY
     Route: 048
     Dates: start: 20101105, end: 20110101

REACTIONS (2)
  - PREGNANCY [None]
  - PREMATURE DELIVERY [None]
